FAERS Safety Report 17800048 (Version 1)
Quarter: 2020Q2

REPORT INFORMATION
  Report Type: Spontaneous
  Country: US (occurrence: US)
  Receive Date: 20200518
  Receipt Date: 20200518
  Transmission Date: 20200714
  Serious: No
  Sender: FDA-Public Use
  Company Number: US-GLENMARK PHARMACEUTICALS-2020GMK046221

PATIENT

DRUGS (1)
  1. ETHINYL ESTRADIOL/NORETHINDRONE ACETATE [Suspect]
     Active Substance: ETHINYL ESTRADIOL\NORETHINDRONE ACETATE
     Indication: OSTEOPENIA
     Dosage: UNK, OD
     Route: 048
     Dates: start: 201910

REACTIONS (5)
  - Feeling abnormal [Unknown]
  - Gluten sensitivity [Unknown]
  - Thinking abnormal [Unknown]
  - Product use in unapproved indication [Unknown]
  - Abdominal discomfort [Unknown]

NARRATIVE: CASE EVENT DATE: 201910
